FAERS Safety Report 8907051 (Version 2)
Quarter: 2013Q2

REPORT INFORMATION
  Report Type: Spontaneous
  Country: AR (occurrence: AR)
  Receive Date: 20121114
  Receipt Date: 20130503
  Transmission Date: 20140414
  Serious: Yes (Death, Other)
  Sender: FDA-Public Use
  Company Number: PHHY2012AR104677

PATIENT
  Age: 37 Year
  Sex: Female

DRUGS (8)
  1. MEROPENEM [Suspect]
     Indication: RESPIRATORY TRACT INFECTION
  2. VALPROIC ACID [Interacting]
     Indication: GRAND MAL CONVULSION
     Dosage: 20 MG/KG,LOADING DOSE
  3. VALPROIC ACID [Interacting]
     Dosage: 1000 MG PER DAY
  4. CEFTAZIDIME [Concomitant]
  5. VANCOMYCIN [Concomitant]
  6. PHENYTOIN [Concomitant]
     Dosage: 20 MG/KG OF WEIGHT
     Route: 042
  7. PHENYTOIN [Concomitant]
     Dosage: 300 MG, PER DAY
  8. MIDAZOLAM [Concomitant]
     Route: 042

REACTIONS (4)
  - Sepsis [Fatal]
  - Depressed level of consciousness [Unknown]
  - Anticonvulsant drug level decreased [Unknown]
  - Drug interaction [Unknown]
